FAERS Safety Report 12759278 (Version 1)
Quarter: 2016Q3

REPORT INFORMATION
  Report Type: Spontaneous
  Country: KZ (occurrence: KZ)
  Receive Date: 20160919
  Receipt Date: 20160919
  Transmission Date: 20161109
  Serious: Yes (Other)
  Sender: FDA-Public Use
  Company Number: KZ-BAYER-2016-180432

PATIENT
  Sex: Female

DRUGS (3)
  1. JEANINE [Suspect]
     Active Substance: DIENOGEST\ETHINYL ESTRADIOL
     Dosage: UNK
     Route: 048
     Dates: start: 2016, end: 2016
  2. VISANNE 2MG [Suspect]
     Active Substance: DIENOGEST
     Dosage: UNK
     Route: 048
     Dates: end: 20160902
  3. MIRENA [Suspect]
     Active Substance: LEVONORGESTREL
     Dosage: 20 MCG/24HR, CONT
     Route: 015
     Dates: start: 20151027, end: 20160212

REACTIONS (10)
  - Vaginal haemorrhage [None]
  - Ovarian cyst [None]
  - Device expulsion [None]
  - Abdominal distension [None]
  - Abdominal pain lower [None]
  - Ascites [None]
  - Ovarian cancer [None]
  - Metastasis [None]
  - Weight decreased [None]
  - Amenorrhoea [None]

NARRATIVE: CASE EVENT DATE: 2016
